FAERS Safety Report 9671339 (Version 2)
Quarter: 2013Q4

REPORT INFORMATION
  Report Type: Report from Study
  Country: SE (occurrence: SE)
  Receive Date: 20131106
  Receipt Date: 20131106
  Transmission Date: 20140711
  Serious: Yes (Hospitalization)
  Sender: FDA-Public Use
  Company Number: SE-BAYER-2013-026451

PATIENT
  Age: 81 Year
  Sex: Male
  Weight: 76.7 kg

DRUGS (4)
  1. ALPHARADIN [Suspect]
     Indication: PROSTATE CANCER
     Dosage: 50 KBQ/ KG
     Route: 042
     Dates: start: 20130206, end: 20130206
  2. OXYNORM [Concomitant]
     Indication: PAIN IN EXTREMITY
     Dosage: 5 MG, PRN
     Route: 048
     Dates: start: 20130123
  3. OXYCONTIN [Concomitant]
     Indication: PAIN IN EXTREMITY
     Dosage: DAILY DOSE 40 MG
     Route: 048
     Dates: start: 20130123
  4. NORSPAN [Concomitant]
     Indication: PAIN IN EXTREMITY
     Dosage: DAILY DOSE 240 ?G
     Route: 061
     Dates: start: 20130206

REACTIONS (3)
  - Bone pain [Recovered/Resolved]
  - Infection [Recovered/Resolved]
  - Constipation [Recovered/Resolved]
